FAERS Safety Report 4518683-4 (Version None)
Quarter: 2004Q4

REPORT INFORMATION
  Report Type: 
  Country: None (occurrence: None)
  Receive Date: 20041201
  Receipt Date: 20041123
  Transmission Date: 20050328
  Serious: Yes (Hospitalization)
  Sender: FDA-Public Use
  Company Number: BEWYE230924NOV04

PATIENT
  Age: 51 Year
  Sex: Female

DRUGS (2)
  1. RAPAMUNE [Suspect]
     Indication: RENAL TRANSPLANT
     Dosage: ORAL
     Route: 048
     Dates: start: 20041007
  2. CORTICOSTEROIDS (CORTICOSTEROIDS, ,0) [Suspect]

REACTIONS (1)
  - DIABETES MELLITUS [None]
